FAERS Safety Report 5116910-6 (Version None)
Quarter: 2006Q3

REPORT INFORMATION
  Report Type: 
  Country: None (occurrence: None)
  Receive Date: 20060927
  Receipt Date: 20060927
  Transmission Date: 20061208
  Serious: Yes (Hospitalization)
  Sender: FDA-Public Use
  Company Number: None

PATIENT
  Age: 51 Year
  Sex: Female

DRUGS (3)
  1. PHOSPHOSODA GINGER LEMON [Suspect]
     Indication: COLONOSCOPY
     Dosage: 45 ML; PO
     Route: 048
     Dates: start: 20060708, end: 20060709
  2. HCT ^CT-ARZNEIMITTEL^ [Concomitant]
  3. BENICAR [Concomitant]

REACTIONS (1)
  - RENAL FAILURE ACUTE [None]
